FAERS Safety Report 21903282 (Version 2)
Quarter: 2023Q2

REPORT INFORMATION
  Report Type: Spontaneous
  Country: US (occurrence: US)
  Receive Date: 20230124
  Receipt Date: 20230618
  Transmission Date: 20230722
  Serious: No
  Sender: FDA-Public Use
  Company Number: US-SA-SAC20230120001794

PATIENT
  Age: 47 Year
  Sex: Female
  Weight: 54.4 kg

DRUGS (1)
  1. CEREZYME [Suspect]
     Active Substance: IMIGLUCERASE
     Indication: Gaucher^s disease
     Dosage: 3200U, EVERY 2 WEEKS
     Route: 042
     Dates: start: 202103

REACTIONS (1)
  - Weight decreased [Unknown]
